FAERS Safety Report 6876800-5 (Version None)
Quarter: 2010Q3

REPORT INFORMATION
  Report Type: 
  Country: None (occurrence: None)
  Receive Date: 20100727
  Receipt Date: 20100716
  Transmission Date: 20110219
  Serious: Yes (Other)
  Sender: FDA-Public Use
  Company Number: PHHY2010BR46998

PATIENT
  Sex: Female

DRUGS (5)
  1. DIOVAN HCT [Suspect]
     Indication: HYPERTENSION
     Dosage: HALF TABLET (320/12.5 MG) DAILY
     Route: 048
  2. DIOVAN HCT [Suspect]
     Indication: CARDIAC DISORDER
  3. PURAN T4 [Concomitant]
     Indication: HYPOTHYROIDISM
  4. OMEPRAZOLE [Concomitant]
     Indication: ABDOMINAL DISCOMFORT
  5. CLONAZEPAM [Concomitant]
     Indication: INSOMNIA
     Dosage: 2.5 MG, UNK

REACTIONS (4)
  - CATHETERISATION CARDIAC [None]
  - DRUG DISPENSING ERROR [None]
  - DRUG DOSE OMISSION [None]
  - WRONG TECHNIQUE IN DRUG USAGE PROCESS [None]
